FAERS Safety Report 9280233 (Version 1)
Quarter: 2013Q2

REPORT INFORMATION
  Report Type: Spontaneous
  Country: US (occurrence: US)
  Receive Date: 20130509
  Receipt Date: 20130509
  Transmission Date: 20140414
  Serious: Yes (Other)
  Sender: FDA-Public Use
  Company Number: PHEH2013US010132

PATIENT
  Age: 61 Year
  Sex: Female

DRUGS (1)
  1. TOBI [Suspect]
     Indication: PSEUDOMONAS INFECTION
     Dosage: 300 MG, BID
     Dates: end: 20130306

REACTIONS (2)
  - Glomerular filtration rate increased [Unknown]
  - Blood creatinine increased [Unknown]
